FAERS Safety Report 22047804 (Version 1)
Quarter: 2023Q1

REPORT INFORMATION
  Report Type: Spontaneous
  Country: CN (occurrence: CN)
  Receive Date: 20230301
  Receipt Date: 20230301
  Transmission Date: 20230417
  Serious: Yes (Hospitalization, Other)
  Sender: FDA-Public Use
  Company Number: CN-ALKEM LABORATORIES LIMITED-CN-ALKEM-2022-12214

PATIENT

DRUGS (4)
  1. AMOXICILLIN [Suspect]
     Active Substance: AMOXICILLIN
     Indication: Helicobacter infection
     Dosage: 1000 MILLIGRAM, TID
     Route: 065
  2. LANSOPRAZOLE [Suspect]
     Active Substance: LANSOPRAZOLE
     Indication: Helicobacter infection
     Dosage: 30 MILLIGRAM, BID
     Route: 065
  3. BISMUTH SUBCITRATE [Suspect]
     Active Substance: BISMUTH SUBCITRATE
     Indication: Helicobacter infection
     Dosage: 220 MILLIGRAM, BID
     Route: 065
  4. FURAZOLIDONE [Suspect]
     Active Substance: FURAZOLIDONE
     Indication: Helicobacter infection
     Dosage: 100 MILLIGRAM, TID
     Route: 065

REACTIONS (2)
  - Anaphylactic reaction [Unknown]
  - Hypersensitivity [Unknown]
